FAERS Safety Report 15191979 (Version 4)
Quarter: 2023Q2

REPORT INFORMATION
  Report Type: Report from Study
  Country: GB (occurrence: GB)
  Receive Date: 20180724
  Receipt Date: 20230519
  Transmission Date: 20230722
  Serious: No
  Sender: FDA-Public Use
  Company Number: PHHY2018GB051432

PATIENT
  Age: 50 Year
  Sex: Female

DRUGS (2)
  1. COSENTYX [Suspect]
     Active Substance: SECUKINUMAB
     Indication: Ankylosing spondylitis
     Dosage: 150 MG, QMO
     Route: 058
     Dates: start: 20180517
  2. COSENTYX [Suspect]
     Active Substance: SECUKINUMAB
     Dosage: 150 MG, Q2W (2 PRE-FILLED DISPOSABLE INJECTION)
     Route: 058

REACTIONS (4)
  - Malaise [Unknown]
  - Sinusitis [Recovering/Resolving]
  - Infection [Unknown]
  - Inappropriate schedule of product administration [Unknown]
